FAERS Safety Report 4523274-5 (Version None)
Quarter: 2004Q4

REPORT INFORMATION
  Report Type: 
  Country: None (occurrence: None)
  Receive Date: 20041202
  Receipt Date: 20041122
  Transmission Date: 20050328
  Serious: Yes (Other)
  Sender: FDA-Public Use
  Company Number: 200410874BCA

PATIENT
  Age: 48 Year
  Sex: Male

DRUGS (4)
  1. GAMUNEX [Suspect]
     Indication: BURKITT'S LYMPHOMA
     Dosage: 80 G, QD, INTRAVENOUS
     Route: 042
     Dates: start: 20041031
  2. GAMUNEX [Suspect]
     Indication: BURKITT'S LYMPHOMA
     Dosage: 20 G, QD, INTRAVENOUS
     Route: 042
     Dates: start: 20041101
  3. BENADRYL [Concomitant]
  4. TYLENOL (CAPLET) [Concomitant]

REACTIONS (2)
  - HYPERTENSION [None]
  - LABORATORY TEST ABNORMAL [None]
